FAERS Safety Report 12539633 (Version 1)
Quarter: 2016Q3

REPORT INFORMATION
  Report Type: Spontaneous
  Country: DE (occurrence: DE)
  Receive Date: 20160708
  Receipt Date: 20160708
  Transmission Date: 20161109
  Serious: Yes (Other)
  Sender: FDA-Public Use
  Company Number: DE-BIOVITRUM-2016DE0449

PATIENT
  Age: 46 Year
  Sex: Female
  Weight: 124 kg

DRUGS (2)
  1. KINERET [Suspect]
     Active Substance: ANAKINRA
     Indication: CRYOPYRIN ASSOCIATED PERIODIC SYNDROME
     Dates: start: 20151005, end: 20160519
  2. KINERET [Suspect]
     Active Substance: ANAKINRA
     Indication: MUCKLE-WELLS SYNDROME

REACTIONS (3)
  - Drug ineffective [Not Recovered/Not Resolved]
  - Infection [Recovered/Resolved]
  - Deafness [Not Recovered/Not Resolved]

NARRATIVE: CASE EVENT DATE: 201603
